FAERS Safety Report 6609526-3 (Version None)
Quarter: 2010Q1

REPORT INFORMATION
  Report Type: 
  Country: None (occurrence: None)
  Receive Date: 20100224
  Receipt Date: 20100210
  Transmission Date: 20100710
  Serious: No
  Sender: FDA-Public Use
  Company Number: 008806

PATIENT
  Age: 61 Year
  Sex: Male

DRUGS (1)
  1. CILOSTAZOL [Suspect]
     Indication: INTERMITTENT CLAUDICATION
     Dosage: 400 MG, DAILY DOSE ORAL
     Route: 048
     Dates: start: 20091008

REACTIONS (2)
  - LIBIDO INCREASED [None]
  - PRIAPISM [None]
